FAERS Safety Report 19930805 (Version 1)
Quarter: 2021Q4

REPORT INFORMATION
  Report Type: Spontaneous
  Country: DE (occurrence: DE)
  Receive Date: 20211007
  Receipt Date: 20211007
  Transmission Date: 20220304
  Serious: Yes (Life-Threatening, Hospitalization, Other)
  Sender: FDA-Public Use
  Company Number: DE-DCGMA-21188008

PATIENT
  Age: 79 Year
  Sex: Male
  Weight: 76 kg

DRUGS (6)
  1. ALENDRONATE [Suspect]
     Active Substance: ALENDRONATE SODIUM
     Indication: Osteoporosis
     Dosage: DAILY DOSE: 70 MG MILLGRAM(S) EVERY WEEKS
  2. TILIDINE [Interacting]
     Active Substance: TILIDINE
     Indication: Back pain
     Dosage: 50/4; 4 TABL./TAG
  3. FALITHROM [Suspect]
     Active Substance: PHENPROCOUMON
     Indication: Coronary artery disease
     Dosage: DAILY DOSE: 1.5 MG MILLGRAM(S) EVERY DAYS
  4. CHOLECALCIFEROL [Concomitant]
     Active Substance: CHOLECALCIFEROL
     Indication: Osteoporosis
     Dosage: DAILY DOSE: 1000 IU INTERNATIONAL UNIT(S) EVERY DAYS
  5. PANTOPRAZOLE [Concomitant]
     Active Substance: PANTOPRAZOLE
     Indication: Gastrooesophageal reflux disease
     Dosage: DAILY DOSE: 20 MG MILLGRAM(S) EVERY DAYS
  6. ATORVASTATIN [Concomitant]
     Active Substance: ATORVASTATIN
     Indication: Lipid metabolism disorder
     Dosage: DAILY DOSE: 20 MG MILLGRAM(S) EVERY DAYS

REACTIONS (6)
  - Haematuria [Unknown]
  - Anaemia [Unknown]
  - Haematoma [Unknown]
  - International normalised ratio increased [Unknown]
  - Melaena [Unknown]
  - Drug interaction [Unknown]

NARRATIVE: CASE EVENT DATE: 20200423
